FAERS Safety Report 21211385 (Version 4)
Quarter: 2022Q4

REPORT INFORMATION
  Report Type: Report from Study
  Country: JP (occurrence: JP)
  Receive Date: 20220815
  Receipt Date: 20221130
  Transmission Date: 20230113
  Serious: Yes (Hospitalization)
  Sender: FDA-Public Use
  Company Number: JP-NOVARTISPH-NVSJ2022JP094509

PATIENT
  Age: 48 Year
  Sex: Male
  Weight: 72 kg

DRUGS (8)
  1. MAYZENT [Suspect]
     Active Substance: SIPONIMOD
     Indication: Secondary progressive multiple sclerosis
     Dosage: UNK
     Route: 048
  2. SIPONIMOD [Suspect]
     Active Substance: SIPONIMOD
     Indication: Secondary progressive multiple sclerosis
     Dosage: 2 MG (1 TABLET)
     Route: 048
     Dates: start: 20150331
  3. SIPONIMOD [Suspect]
     Active Substance: SIPONIMOD
     Dosage: 1 TABLET
     Route: 048
     Dates: start: 20150401
  4. SIPONIMOD [Suspect]
     Active Substance: SIPONIMOD
     Dosage: 1 TABLET
     Route: 048
     Dates: start: 20150402
  5. SIPONIMOD [Suspect]
     Active Substance: SIPONIMOD
     Dosage: 2 TABLET
     Route: 048
     Dates: start: 20150403
  6. SIPONIMOD [Suspect]
     Active Substance: SIPONIMOD
     Dosage: 2 TABLET
     Route: 048
     Dates: start: 20150404
  7. SIPONIMOD [Suspect]
     Active Substance: SIPONIMOD
     Dosage: 1 TABLET
     Route: 048
     Dates: start: 20150405
  8. ELDECALCITOL [Concomitant]
     Active Substance: ELDECALCITOL
     Indication: Osteoporosis prophylaxis
     Dosage: 0.75 UG, QD
     Route: 048
     Dates: start: 20160429

REACTIONS (1)
  - COVID-19 [Recovered/Resolved]

NARRATIVE: CASE EVENT DATE: 20220715
